FAERS Safety Report 21911223 (Version 1)
Quarter: 2023Q1

REPORT INFORMATION
  Report Type: Spontaneous
  Country: CN (occurrence: CN)
  Receive Date: 20230125
  Receipt Date: 20230125
  Transmission Date: 20230418
  Serious: Yes (Other)
  Sender: FDA-Public Use
  Company Number: CN-009507513-2301CHN008082

PATIENT
  Age: 38 Year
  Sex: Female
  Weight: 50 kg

DRUGS (2)
  1. NOXAFIL [Suspect]
     Active Substance: POSACONAZOLE
     Indication: Plasmacytoma
     Dosage: 10 ML, BID, ORAL
     Route: 048
     Dates: start: 20220623, end: 20220628
  2. NOXAFIL [Suspect]
     Active Substance: POSACONAZOLE
     Indication: Antifungal treatment

REACTIONS (1)
  - Drug-induced liver injury [Recovering/Resolving]

NARRATIVE: CASE EVENT DATE: 20220626
